FAERS Safety Report 4816361-5 (Version None)
Quarter: 2005Q4

REPORT INFORMATION
  Report Type: 
  Country: None (occurrence: None)
  Receive Date: 20051028
  Receipt Date: 20051019
  Transmission Date: 20060501
  Serious: Yes (Death)
  Sender: FDA-Public Use
  Company Number: 2005145373

PATIENT
  Age: 23 Year
  Sex: Female
  Weight: 87 kg

DRUGS (4)
  1. MEDROXYPROGESTERONE [Suspect]
     Dosage: 150 MG (150 MG FIRST INJECTION) INTRAMUSCULAR
     Route: 030
     Dates: start: 20030205, end: 20030205
  2. MICROGYNON (ETHINYLESTRADIOL, LEVONORGESTREL) [Suspect]
     Dosage: ORAL
     Route: 048
     Dates: start: 20010625, end: 20030205
  3. BUDESONIDE [Concomitant]
  4. TERBUTALINE SULFATE [Concomitant]

REACTIONS (2)
  - ANKLE FRACTURE [None]
  - PULMONARY EMBOLISM [None]
